FAERS Safety Report 5091738-4 (Version None)
Quarter: 2006Q3

REPORT INFORMATION
  Report Type: 
  Country: None (occurrence: None)
  Receive Date: 20060829
  Receipt Date: 20060405
  Transmission Date: 20061208
  Serious: Yes (Other)
  Sender: FDA-Public Use
  Company Number: US-BRISTOL-MYERS SQUIBB COMPANY-13337589

PATIENT
  Age: 75 Year
  Sex: Male
  Weight: 57 kg

DRUGS (9)
  1. ERBITUX [Suspect]
     Indication: COLON CANCER METASTATIC
     Dosage: INITIAL DOSE 700 MG ADMINISTERED ON 07-FEB-2006.
     Route: 042
     Dates: start: 20060330, end: 20060330
  2. BENADRYL [Concomitant]
     Indication: PREMEDICATION
     Route: 040
     Dates: start: 20060330
  3. CPT-11 [Concomitant]
     Dosage: RECEIVED IRINOTECAN ON 07-FEB-2006.
     Route: 042
     Dates: start: 20060330, end: 20060330
  4. DECADRON [Concomitant]
     Indication: PREMEDICATION
     Route: 040
     Dates: start: 20060330, end: 20060330
  5. DILANTIN [Concomitant]
     Dosage: AT HS.
  6. FLOMAX [Concomitant]
  7. IMODIUM [Concomitant]
  8. MECLIZINE [Concomitant]
  9. ZOFRAN [Concomitant]
     Indication: PREMEDICATION
     Route: 040
     Dates: start: 20060330, end: 20060330

REACTIONS (1)
  - HYPOMAGNESAEMIA [None]
